FAERS Safety Report 8925918 (Version 1)
Quarter: 2012Q4

REPORT INFORMATION
  Report Type: 
  Country: CA (occurrence: CA)
  Receive Date: 20121126
  Receipt Date: 20121126
  Transmission Date: 20130627
  Serious: Yes (Hospitalization)
  Sender: FDA-Public Use
  Company Number: CA-ASTRAZENECA-2012SE86614

PATIENT
  Age: 34 Year
  Sex: Female
  Weight: 68.5 kg

DRUGS (7)
  1. SEROQUEL [Suspect]
     Route: 048
  2. SEROQUEL [Suspect]
     Route: 048
  3. RISPERDAL CONSTA [Suspect]
     Route: 030
  4. RISPERDAL CONSTA [Suspect]
     Route: 030
  5. RISPERDAL CONSTA [Suspect]
     Route: 065
  6. ATIVAN [Suspect]
     Route: 065
  7. ZYPREXA [Suspect]
     Route: 065

REACTIONS (3)
  - Amenorrhoea [Unknown]
  - Blood cholesterol increased [Unknown]
  - Blood prolactin increased [Unknown]
